FAERS Safety Report 23224432 (Version 2)
Quarter: 2025Q2

REPORT INFORMATION
  Report Type: Spontaneous
  Country: LU (occurrence: LU)
  Receive Date: 20231124
  Receipt Date: 20250625
  Transmission Date: 20250717
  Serious: Yes (Hospitalization, Other)
  Sender: SANDOZ
  Company Number: LU-NOVPHALC-PHHY2018LU014603

PATIENT
  Age: 64 Year
  Sex: Male

DRUGS (27)
  1. ATROPINE SULFATE [Suspect]
     Active Substance: ATROPINE SULFATE
     Indication: Surgery
     Dosage: UNK UNK, QD
     Route: 065
     Dates: start: 20170714, end: 20170714
  2. BUTYLSCOPOLAMINE BROMIDE [Suspect]
     Active Substance: BUTYLSCOPOLAMINE BROMIDE
     Indication: Pain
     Route: 065
     Dates: start: 20170714, end: 20170714
  3. CHLORHEXIDINE GLUCONATE [Suspect]
     Active Substance: CHLORHEXIDINE GLUCONATE
     Indication: Infection
     Route: 061
     Dates: start: 20170714, end: 20170714
  4. DEXAMETHASONE [Suspect]
     Active Substance: DEXAMETHASONE
     Indication: Surgery
     Route: 042
     Dates: start: 20170714, end: 20170714
  5. FENTANYL [Suspect]
     Active Substance: FENTANYL
     Indication: General anaesthesia
     Route: 065
     Dates: start: 20170714, end: 20170714
  6. GLUCOPHAGE [Suspect]
     Active Substance: METFORMIN HYDROCHLORIDE
     Indication: Type 2 diabetes mellitus
     Route: 065
  7. CARVEDILOL [Suspect]
     Active Substance: CARVEDILOL
     Indication: Hypertension
     Route: 048
  8. LIDOCAINE [Suspect]
     Active Substance: LIDOCAINE
     Indication: Anaesthesia
     Route: 065
     Dates: start: 20170714, end: 20170714
  9. MIDAZOLAM [Suspect]
     Active Substance: MIDAZOLAM
     Indication: Anaesthesia
     Dosage: UNK UNK, QD
     Route: 042
     Dates: start: 20170714, end: 20170714
  10. NIMBEX [Suspect]
     Active Substance: CISATRACURIUM BESYLATE
     Indication: Anaesthesia
     Route: 042
     Dates: start: 20170714, end: 20170714
  11. PANTOPRAZOLE [Suspect]
     Active Substance: PANTOPRAZOLE
     Indication: Oesophagitis
     Route: 048
     Dates: start: 20170714, end: 20170714
  12. PROPOFOL [Suspect]
     Active Substance: PROPOFOL
     Indication: Anaesthesia
     Route: 042
     Dates: start: 20170714, end: 20170714
  13. PERFUSALGAN [Suspect]
     Active Substance: ACETAMINOPHEN
     Indication: Product used for unknown indication
     Route: 065
  14. ROCURONIUM [Suspect]
     Active Substance: ROCURONIUM BROMIDE
     Indication: Anaesthesia
     Route: 042
     Dates: start: 20170714, end: 20170714
  15. SEVOFLURANE [Suspect]
     Active Substance: SEVOFLURANE
     Indication: Anaesthesia
     Route: 055
     Dates: start: 20170714, end: 20170714
  16. FOLIC ACID [Concomitant]
     Active Substance: FOLIC ACID
     Indication: Product used for unknown indication
     Route: 065
  17. ALLOPURINOL [Concomitant]
     Active Substance: ALLOPURINOL
     Indication: Hyperuricaemia
     Route: 065
  18. ESOMEPRAZOLE [Concomitant]
     Active Substance: ESOMEPRAZOLE
     Indication: Gastrooesophageal reflux disease
     Route: 065
  19. FOLIC ACID [Concomitant]
     Active Substance: FOLIC ACID
     Indication: Product used for unknown indication
     Route: 065
  20. FOLIC ACID [Concomitant]
     Active Substance: FOLIC ACID
     Indication: Product used for unknown indication
     Route: 065
  21. GLIQUIDONE [Concomitant]
     Active Substance: GLIQUIDONE
     Indication: Product used for unknown indication
     Route: 065
  22. INDAPAMIDE [Concomitant]
     Active Substance: INDAPAMIDE
     Indication: Product used for unknown indication
     Route: 065
  23. JARDIANCE [Concomitant]
     Active Substance: EMPAGLIFLOZIN
     Indication: Type 2 diabetes mellitus
     Route: 065
  24. METHOTREXATE [Concomitant]
     Active Substance: METHOTREXATE
     Indication: Psoriatic arthropathy
     Route: 065
  25. PERINDOPRIL [Concomitant]
     Active Substance: PERINDOPRIL
     Indication: Product used for unknown indication
     Route: 065
  26. AMLODIPINE BESYLATE\INDAPAMIDE\PERINDOPRIL ARGININE [Concomitant]
     Active Substance: AMLODIPINE BESYLATE\INDAPAMIDE\PERINDOPRIL ARGININE
     Indication: Hypertension
     Route: 065
  27. AMLODIPINE BESYLATE\INDAPAMIDE\PERINDOPRIL ARGININE [Concomitant]
     Active Substance: AMLODIPINE BESYLATE\INDAPAMIDE\PERINDOPRIL ARGININE
     Route: 065

REACTIONS (4)
  - Anaphylactic reaction [Recovered/Resolved]
  - Periorbital oedema [Recovered/Resolved]
  - Hypotension [Recovered/Resolved]
  - Erythema [Recovered/Resolved]

NARRATIVE: CASE EVENT DATE: 20170714
